FAERS Safety Report 11335352 (Version 1)
Quarter: 2015Q3

REPORT INFORMATION
  Report Type: Spontaneous
  Country: GB (occurrence: GB)
  Receive Date: 20150804
  Receipt Date: 20150804
  Transmission Date: 20151125
  Serious: Yes (Other)
  Sender: FDA-Public Use
  Company Number: GB-NOVOPROD-458081

PATIENT
  Age: 68 Year
  Sex: Male
  Weight: 114 kg

DRUGS (2)
  1. LEVEMIR PENFILL [Suspect]
     Active Substance: INSULIN DETEMIR
     Indication: TYPE 2 DIABETES MELLITUS
     Dosage: 86 U, QD (42 UNITS IN THE MORNING AND 44 UNITS AT NIGHT)
     Route: 065
  2. NOVORAPID [Suspect]
     Active Substance: INSULIN ASPART
     Indication: TYPE 2 DIABETES MELLITUS
     Dosage: INJECTS VARIABLE DOSE BETWEEN 6 AND 20 UNITS DEPENDING ON DIET
     Route: 065

REACTIONS (3)
  - Lipodystrophy acquired [Not Recovered/Not Resolved]
  - Increased appetite [Not Recovered/Not Resolved]
  - Ocular neoplasm [Not Recovered/Not Resolved]
